FAERS Safety Report 9107777 (Version 2)
Quarter: 2013Q1

REPORT INFORMATION
  Report Type: Report from Study
  Country: GR (occurrence: GR)
  Receive Date: 20130221
  Receipt Date: 20130311
  Transmission Date: 20140127
  Serious: Yes (Life-Threatening, Hospitalization)
  Sender: FDA-Public Use
  Company Number: GR-ROCHE-1192684

PATIENT
  Age: 75 Year
  Sex: Female
  Weight: 68 kg

DRUGS (10)
  1. TOCILIZUMAB [Suspect]
     Indication: RHEUMATOID ARTHRITIS
     Route: 042
     Dates: start: 20130115, end: 20130124
  2. PREZOLON [Concomitant]
     Indication: RHEUMATOID ARTHRITIS
     Route: 050
     Dates: start: 20000101
  3. FORSTEO [Concomitant]
     Indication: OSTEOPOROSIS
     Route: 058
     Dates: start: 20120115
  4. MIACALCIC [Concomitant]
     Indication: OSTEOPOROSIS
     Route: 030
     Dates: start: 20130115
  5. CALCIORAL [Concomitant]
     Indication: OSTEOPOROSIS
     Route: 050
     Dates: start: 20130115
  6. TILDIEM [Concomitant]
     Indication: HYPERTENSION
     Route: 050
     Dates: start: 20000101
  7. ATACAND [Concomitant]
     Indication: HYPERTENSION
     Route: 050
     Dates: start: 20000101
  8. PULMICORT [Concomitant]
     Indication: ASTHMA
     Route: 050
     Dates: start: 19980101
  9. OXEZE [Concomitant]
     Indication: ASTHMA
     Dosage: 4.5 MCG/D
     Route: 050
     Dates: start: 19980101
  10. ASPIRIN [Concomitant]
     Route: 048

REACTIONS (2)
  - Myocardial infarction [Recovered/Resolved with Sequelae]
  - Respiratory tract infection [Recovered/Resolved]
